FAERS Safety Report 5373535-5 (Version None)
Quarter: 2007Q2

REPORT INFORMATION
  Report Type: 
  Country: None (occurrence: None)
  Receive Date: 20070628
  Receipt Date: 20070618
  Transmission Date: 20071010
  Serious: Yes (Other)
  Sender: FDA-Public Use
  Company Number: B0471675A

PATIENT
  Age: 52 Year
  Sex: Male
  Weight: 67 kg

DRUGS (2)
  1. ZYBAN [Suspect]
     Route: 048
     Dates: start: 20070401
  2. PROZAC [Suspect]
     Route: 048
     Dates: start: 20070301

REACTIONS (6)
  - DRUG INTERACTION [None]
  - HYPERAESTHESIA [None]
  - INTENTIONAL DRUG MISUSE [None]
  - LIBIDO INCREASED [None]
  - MAJOR DEPRESSION [None]
  - THERAPEUTIC RESPONSE UNEXPECTED [None]
